FAERS Safety Report 7207301-2 (Version None)
Quarter: 2011Q1

REPORT INFORMATION
  Report Type: 
  Country: None (occurrence: None)
  Receive Date: 20110103
  Receipt Date: 20101229
  Transmission Date: 20110831
  Serious: Yes (Other)
  Sender: FDA-Public Use
  Company Number: ES-ROCHE-750891

PATIENT
  Age: 57 Year
  Sex: Female

DRUGS (1)
  1. BONIVA [Suspect]
     Indication: OSTEOPOROSIS
     Route: 048
     Dates: start: 20101108, end: 20101108

REACTIONS (6)
  - MUSCULOSKELETAL STIFFNESS [None]
  - MYALGIA [None]
  - ARTHRALGIA [None]
  - BACK PAIN [None]
  - CHOKING SENSATION [None]
  - ARTHRITIS [None]
